FAERS Safety Report 23657681 (Version 1)
Quarter: 2024Q1

REPORT INFORMATION
  Report Type: Spontaneous
  Country: US (occurrence: None)
  Receive Date: 20240320
  Receipt Date: 20240320
  Transmission Date: 20240410
  Serious: Yes (Hospitalization)
  Sender: FDA-Public Use
  Company Number: None

PATIENT
  Age: 51 Year
  Sex: Female
  Weight: 59.9 kg

DRUGS (2)
  1. NIVOLUMAB [Suspect]
     Active Substance: NIVOLUMAB
     Dosage: FREQUENCY : MONTHLY;?
     Route: 042
  2. CABOZANTINIB [Suspect]
     Active Substance: CABOZANTINIB
     Dosage: FREQUENCY : EVERY OTHER DAY;?
     Route: 048

REACTIONS (4)
  - Hypertransaminasaemia [None]
  - Diarrhoea [None]
  - Abdominal distension [None]
  - Electrolyte imbalance [None]

NARRATIVE: CASE EVENT DATE: 20240319
